FAERS Safety Report 6421329-1 (Version None)
Quarter: 2009Q4

REPORT INFORMATION
  Report Type: 
  Country: None (occurrence: None)
  Receive Date: 20091030
  Receipt Date: 20091015
  Transmission Date: 20100525
  Serious: Yes (Other)
  Sender: FDA-Public Use
  Company Number: PHHY2009IT45485

PATIENT
  Sex: Male

DRUGS (2)
  1. CERTICAN [Suspect]
     Indication: LIVER TRANSPLANT
  2. CERTICAN [Suspect]
     Indication: IMMUNOSUPPRESSION

REACTIONS (1)
  - HEPATIC STEATOSIS [None]
